FAERS Safety Report 5080166-3 (Version None)
Quarter: 2006Q3

REPORT INFORMATION
  Report Type: 
  Country: None (occurrence: None)
  Receive Date: 20060815
  Receipt Date: 20060731
  Transmission Date: 20061208
  Serious: Yes (Other)
  Sender: FDA-Public Use
  Company Number: NO-AVENTIS-200618069GDDC

PATIENT
  Age: 47 Year
  Sex: Male

DRUGS (1)
  1. FLAGYL [Suspect]
     Indication: BORRELIA INFECTION
     Route: 048
     Dates: start: 20060727, end: 20060729

REACTIONS (5)
  - BACTERIAL INFECTION [None]
  - CANDIDIASIS [None]
  - GASTROINTESTINAL DISORDER [None]
  - GENERAL PHYSICAL HEALTH DETERIORATION [None]
  - INFLUENZA LIKE ILLNESS [None]
